FAERS Safety Report 9604430 (Version 1)
Quarter: 2013Q4

REPORT INFORMATION
  Report Type: Spontaneous
  Country: ES (occurrence: ES)
  Receive Date: 20131008
  Receipt Date: 20131008
  Transmission Date: 20140711
  Serious: Yes (Other)
  Sender: FDA-Public Use
  Company Number: ES-ELI_LILLY_AND_COMPANY-ES201309010368

PATIENT
  Age: 50 Year
  Sex: Female

DRUGS (6)
  1. ZYPREXA VELOTAB [Suspect]
     Indication: OBSESSIVE-COMPULSIVE DISORDER
     Dosage: 10 MG, BID
     Route: 048
  2. ZYPREXA VELOTAB [Suspect]
     Dosage: 30 MG, QD
     Route: 048
     Dates: start: 20130925
  3. DEPRAX [Concomitant]
     Indication: OBSESSIVE-COMPULSIVE DISORDER
     Dosage: 1 DF, UNKNOWN
  4. ESCITALOPRAM [Concomitant]
     Indication: OBSESSIVE-COMPULSIVE DISORDER
     Dosage: 20 MG, UNKNOWN
  5. TRANKIMAZIN [Concomitant]
     Indication: OBSESSIVE-COMPULSIVE DISORDER
     Dosage: 2 MG, UNKNOWN
  6. LYRICA [Concomitant]
     Indication: OBSESSIVE-COMPULSIVE DISORDER
     Dosage: 2 MG, UNKNOWN

REACTIONS (7)
  - Feeling of despair [Not Recovered/Not Resolved]
  - Crying [Not Recovered/Not Resolved]
  - Nervousness [Not Recovered/Not Resolved]
  - Memory impairment [Unknown]
  - Enuresis [Not Recovered/Not Resolved]
  - Prescribed overdose [Unknown]
  - Off label use [Unknown]
